FAERS Safety Report 19421819 (Version 6)
Quarter: 2021Q3

REPORT INFORMATION
  Report Type: Spontaneous
  Country: JP (occurrence: JP)
  Receive Date: 20210616
  Receipt Date: 20210828
  Transmission Date: 20211014
  Serious: Yes (Death, Life-Threatening, Hospitalization)
  Sender: FDA-Public Use
  Company Number: JP-ABBVIE-21K-087-3951228-00

PATIENT
  Age: 82 Year
  Sex: Female
  Weight: 42.9 kg

DRUGS (18)
  1. CEFEPIME DIHYDROCHLORIDE [Suspect]
     Active Substance: CEFEPIME HYDROCHLORIDE
     Indication: PSEUDOMONAS INFECTION
     Route: 065
     Dates: start: 202104, end: 2021
  2. BUDESONIDE. [Concomitant]
     Active Substance: BUDESONIDE
     Indication: CROHN^S DISEASE
     Route: 048
     Dates: start: 20210227, end: 20210414
  3. MESALAZINE [Concomitant]
     Active Substance: MESALAMINE
     Indication: CROHN^S DISEASE
     Route: 048
     Dates: start: 20210227
  4. BISOPROLOL [Concomitant]
     Active Substance: BISOPROLOL
     Dosage: 4 MG
     Route: 062
     Dates: start: 202104
  5. HUMIRA [Suspect]
     Active Substance: ADALIMUMAB
     Route: 058
     Dates: start: 20210325, end: 20210408
  6. CEFTRIAXONE SODIUM HYDRATE [Concomitant]
     Active Substance: CEFTRIAXONE SODIUM
     Indication: PSEUDOMONAS INFECTION
     Route: 065
  7. MEROPENEM. [Concomitant]
     Active Substance: MEROPENEM
     Indication: URINARY TRACT INFECTION
     Route: 065
  8. RABEPRAZOLE SODIUM. [Concomitant]
     Active Substance: RABEPRAZOLE SODIUM
     Indication: GASTROOESOPHAGEAL REFLUX DISEASE
     Route: 048
  9. CEFEPIME DIHYDROCHLORIDE [Suspect]
     Active Substance: CEFEPIME HYDROCHLORIDE
     Indication: KLEBSIELLA INFECTION
  10. PIPERACILLIN. [Concomitant]
     Active Substance: PIPERACILLIN SODIUM
     Indication: URINARY TRACT INFECTION
     Route: 065
  11. VANCOMYCIN HYDROCHLORIDE. [Concomitant]
     Active Substance: VANCOMYCIN HYDROCHLORIDE
     Indication: URINARY TRACT INFECTION
     Route: 065
  12. MICAFUNGIN SODIUM [Concomitant]
     Active Substance: MICAFUNGIN SODIUM
     Indication: URINARY TRACT INFECTION
     Route: 065
     Dates: start: 20210508
  13. HUMIRA [Suspect]
     Active Substance: ADALIMUMAB
     Indication: CROHN^S DISEASE
     Route: 058
     Dates: start: 20210311, end: 20210311
  14. BISOPROLOL [Concomitant]
     Active Substance: BISOPROLOL
     Indication: SUPRAVENTRICULAR EXTRASYSTOLES
     Dosage: 2 MG
     Route: 062
     Dates: start: 20210114
  15. CLOSTRIDIUM BUTYRICUM [Concomitant]
     Active Substance: CLOSTRIDIUM BUTYRICUM SPORES STRAIN M-55
     Indication: CROHN^S DISEASE
     Route: 048
     Dates: start: 20210227
  16. IMURAN [Suspect]
     Active Substance: AZATHIOPRINE
     Indication: CROHN^S DISEASE
     Route: 048
     Dates: start: 20210227, end: 20210429
  17. CEFTRIAXONE SODIUM HYDRATE [Concomitant]
     Active Substance: CEFTRIAXONE SODIUM
     Indication: KLEBSIELLA INFECTION
  18. TAZOBACTAM [Concomitant]
     Active Substance: TAZOBACTAM
     Indication: URINARY TRACT INFECTION
     Route: 065

REACTIONS (9)
  - Sepsis [Recovering/Resolving]
  - Dehydration [Unknown]
  - Cardiac failure congestive [Fatal]
  - Supraventricular extrasystoles [Unknown]
  - Female genital tract fistula [Unknown]
  - Atrial fibrillation [Unknown]
  - Epilepsy [Recovering/Resolving]
  - Blood sodium decreased [Unknown]
  - Crohn^s disease [Unknown]

NARRATIVE: CASE EVENT DATE: 2021
